FAERS Safety Report 8269653-4 (Version None)
Quarter: 2012Q2

REPORT INFORMATION
  Report Type: 
  Country: None (occurrence: None)
  Receive Date: 20120410
  Receipt Date: 20120405
  Transmission Date: 20120825
  Serious: Yes (Hospitalization)
  Sender: FDA-Public Use
  Company Number: JP-SP-2010-07127

PATIENT
  Sex: Male

DRUGS (4)
  1. IMMUCYST [Suspect]
     Indication: BLADDER CANCER
     Route: 043
     Dates: start: 20101012, end: 20101130
  2. METFORMIN HYDROCHLORIDE [Concomitant]
  3. ROSUVASTATIN CALCIUM [Concomitant]
  4. GLIMEPIRIDE [Concomitant]

REACTIONS (6)
  - TUBERCULOSIS [None]
  - BOVINE TUBERCULOSIS [None]
  - INFLAMMATION [None]
  - PYREXIA [None]
  - POLLAKIURIA [None]
  - DYSURIA [None]
